FAERS Safety Report 6130131-X (Version None)
Quarter: 2009Q1

REPORT INFORMATION
  Report Type: 
  Country: None (occurrence: None)
  Receive Date: 20090324
  Receipt Date: 20090313
  Transmission Date: 20090719
  Serious: Yes (Other)
  Sender: FDA-Public Use
  Company Number: IT-AMGEN-UK338334

PATIENT
  Sex: Female

DRUGS (4)
  1. KINERET [Suspect]
     Indication: JUVENILE ARTHRITIS
     Route: 058
     Dates: start: 20080920, end: 20081007
  2. FOLIC ACID [Concomitant]
     Dates: start: 20060329, end: 20081007
  3. ATORVASTATIN [Concomitant]
     Dates: start: 20081114, end: 20081114
  4. ZESTORETIC [Concomitant]
     Dates: start: 20060401, end: 20081114

REACTIONS (1)
  - INJECTION SITE ERYTHEMA [None]
